FAERS Safety Report 25691751 (Version 1)
Quarter: 2025Q3

REPORT INFORMATION
  Report Type: Spontaneous
  Country: DZ (occurrence: DZ)
  Receive Date: 20250818
  Receipt Date: 20250818
  Transmission Date: 20251021
  Serious: Yes (Hospitalization)
  Sender: JUBILANT
  Company Number: DZ-JUBILANT CADISTA PHARMACEUTICALS-2025JUB00093

PATIENT
  Age: 36 Year
  Sex: Female

DRUGS (1)
  1. METHYLPREDNISOLONE [Suspect]
     Active Substance: METHYLPREDNISOLONE
     Indication: Lupus nephritis
     Dosage: 1 G PER DAY (FOR 3 DAYS)
     Route: 065

REACTIONS (1)
  - Bradycardia [Recovered/Resolved]
